FAERS Safety Report 7506039-1 (Version None)
Quarter: 2011Q2

REPORT INFORMATION
  Report Type: 
  Country: None (occurrence: None)
  Receive Date: 20110526
  Receipt Date: 20110524
  Transmission Date: 20111010
  Serious: Yes (Death)
  Sender: FDA-Public Use
  Company Number: PHHY2010MX67764

PATIENT
  Sex: Female

DRUGS (6)
  1. EXELON [Suspect]
     Indication: DEMENTIA ALZHEIMER'S TYPE
     Dosage: 1 PATCH PER DAY OF 5CM^2
     Route: 062
     Dates: start: 20080801, end: 20100915
  2. VALSARTAN [Concomitant]
  3. METOPROLOL TARTRATE [Concomitant]
  4. EXELON [Suspect]
     Dosage: 1 PATCH 10CM^2 DAILY
     Route: 062
     Dates: start: 20100915
  5. ENALAPRIL MALEATE [Concomitant]
  6. AMLODIPINE [Concomitant]

REACTIONS (2)
  - ACUTE MYOCARDIAL INFARCTION [None]
  - MEMORY IMPAIRMENT [None]
